FAERS Safety Report 7956604-2 (Version None)
Quarter: 2011Q4

REPORT INFORMATION
  Report Type: 
  Country: None (occurrence: None)
  Receive Date: 20111201
  Receipt Date: 20111117
  Transmission Date: 20120403
  Serious: Yes (Other)
  Sender: FDA-Public Use
  Company Number: DSJ-2011-24606

PATIENT
  Age: 63 Year
  Sex: Male
  Weight: 45.5 kg

DRUGS (9)
  1. D-ALFA (ALFACALCIDOL) (ALFACALCIDOL) [Concomitant]
  2. FUROSEMIDE (FUROSEMIDE) (TABLET) (FUROSEMIDE) [Concomitant]
  3. SEIBULE (MIGLITOL)(TABLET)(MIGLITOL) [Concomitant]
  4. CRESTOR (ROSUVASTATIN CALCIUM) (TABLET) (ROSUVASTATIN CALCIUM) [Concomitant]
  5. LANTUS (INSULIN GLARGINE)(INSULIN GLARGINE) [Concomitant]
  6. PANALDINE (TICLOPIDINE HYDROCHLORIDE) (TABLET)(TICLOPIDINE HYDROCHLORI [Concomitant]
  7. OLMESARTAN MEDOXOMIL [Suspect]
     Indication: HYPERTENSION
     Dosage: 10 MG (10 MG,1 IN 1 D),PER ORAL
     Route: 048
     Dates: start: 20110722, end: 20110725
  8. FERROMIA (FERROUS SODIUM CITRATE) (TABLET) (FERROUS SODIUM CITRATE) [Concomitant]
  9. CALTAN OD (CALCIUM CARBONATE) (TABLET) (CALCIUM CARBONATE) [Concomitant]

REACTIONS (4)
  - DIZZINESS [None]
  - FALL [None]
  - LOSS OF CONSCIOUSNESS [None]
  - CONTUSION [None]
